FAERS Safety Report 6622049-0 (Version None)
Quarter: 2010Q1

REPORT INFORMATION
  Report Type: 
  Country: None (occurrence: None)
  Receive Date: 20100304
  Receipt Date: 20100224
  Transmission Date: 20100710
  Serious: Yes (Hospitalization)
  Sender: FDA-Public Use
  Company Number: 2010SP011987

PATIENT
  Age: 79 Year
  Sex: Male

DRUGS (6)
  1. REXER FLAS     (MIRTAZAPINE /01293201/) [Suspect]
     Indication: DEPRESSION
     Dosage: 15 MG; BID; PO
     Route: 048
     Dates: start: 20090401, end: 20091008
  2. SEGURIL     (FUROSEMIDE /00032601/ ) [Suspect]
     Indication: HYPERTENSION
     Dosage: 40 MG; QD; PO
     Route: 048
     Dates: start: 20080101, end: 20091008
  3. OMEPRAZOLE [Concomitant]
  4. ISCOVER [Concomitant]
  5. LORAZEPAM [Concomitant]
  6. PERMIXON [Concomitant]

REACTIONS (3)
  - DEPRESSED LEVEL OF CONSCIOUSNESS [None]
  - DRUG INTERACTION [None]
  - HYPONATRAEMIA [None]
